FAERS Safety Report 4692620-4 (Version None)
Quarter: 2005Q2

REPORT INFORMATION
  Report Type: 
  Country: None (occurrence: None)
  Receive Date: 20050617
  Receipt Date: 20050606
  Transmission Date: 20051028
  Serious: Yes (Hospitalization)
  Sender: FDA-Public Use
  Company Number: NO-ABBOTT-05P-122-0302398-00

PATIENT
  Age: 80 Year
  Sex: Female

DRUGS (14)
  1. LEVOTHYROXINE SODIUM [Suspect]
     Indication: THYROID GLAND CANCER
     Dosage: NOT REPORTED
  2. LEVOTHYROXINE SODIUM [Suspect]
     Dosage: NOT REPORTED
     Dates: end: 20040301
  3. LEVOTHYROXINE SODIUM [Suspect]
     Dates: start: 20040301
  4. CIPROFLOXACIN HCL [Interacting]
     Indication: OSTEOMYELITIS
     Route: 048
     Dates: start: 20031229, end: 20040301
  5. CALCITRIOL [Concomitant]
     Indication: DRUG USE FOR UNKNOWN INDICATION
     Dosage: NOT REPORTED
  6. PROPRANOLOL [Concomitant]
     Indication: DRUG USE FOR UNKNOWN INDICATION
     Dosage: NOT REPORTED
  7. RANITIDINE [Concomitant]
     Indication: DRUG USE FOR UNKNOWN INDICATION
     Dosage: NOT REPORTED
  8. FUROSEMIDE [Concomitant]
     Indication: DRUG USE FOR UNKNOWN INDICATION
     Dosage: NOT REPORTED
  9. METHENAMINE HIPPURATE [Concomitant]
     Indication: DRUG USE FOR UNKNOWN INDICATION
     Dosage: NOT REPORTED
  10. PARACETAMOL [Concomitant]
     Indication: DRUG USE FOR UNKNOWN INDICATION
     Dosage: NOT REPORTED
  11. MORPHINE [Concomitant]
     Indication: DRUG USE FOR UNKNOWN INDICATION
     Dosage: NOT REPORTED
  12. ONDANSETRON [Concomitant]
     Indication: DRUG USE FOR UNKNOWN INDICATION
     Dosage: NOT REPORTED
  13. DICLOXACILLIN [Concomitant]
     Indication: OSTEOMYELITIS
     Dosage: NOT REPORTED
     Route: 042
  14. HEPARIN [Concomitant]
     Indication: OSTEOMYELITIS
     Dosage: NOT REPORTED
     Route: 058

REACTIONS (2)
  - DRUG INTERACTION [None]
  - HYPOTHYROIDISM [None]
